FAERS Safety Report 10748372 (Version 2)
Quarter: 2016Q1

REPORT INFORMATION
  Report Type: Spontaneous
  Country: JP (occurrence: JP)
  Receive Date: 20150129
  Receipt Date: 20160303
  Transmission Date: 20160525
  Serious: Yes (Death)
  Sender: FDA-Public Use
  Company Number: JP-TEVA-537375ISR

PATIENT
  Age: 66 Year
  Sex: Male
  Weight: 45 kg

DRUGS (9)
  1. FENTOS [Concomitant]
     Active Substance: FENTANYL
     Indication: CANCER PAIN
     Route: 062
     Dates: start: 20140521, end: 20140522
  2. NEXIUM [Concomitant]
     Active Substance: ESOMEPRAZOLE MAGNESIUM
     Route: 048
     Dates: start: 20140604
  3. E-FEN BUCCAL [Suspect]
     Active Substance: FENTANYL CITRATE
     Indication: BREAKTHROUGH PAIN
     Dosage: DAILY DOSE: 50- 150 MICROGRAM
     Route: 002
     Dates: start: 20140522, end: 20140526
  4. MOBIC [Concomitant]
     Active Substance: MELOXICAM
     Indication: CANCER PAIN
     Route: 048
     Dates: start: 20140520, end: 20140604
  5. E-FEN BUCCAL [Suspect]
     Active Substance: FENTANYL CITRATE
     Dosage: DAILY DOSE: 200- 400 MICROGRAM
     Route: 002
     Dates: start: 20140526, end: 20140531
  6. FENTOS [Concomitant]
     Active Substance: FENTANYL
     Route: 062
     Dates: start: 20140523, end: 20140526
  7. REBAMIPIDE [Concomitant]
     Active Substance: REBAMIPIDE
     Route: 048
     Dates: start: 20140518, end: 20140604
  8. FENTOS [Concomitant]
     Active Substance: FENTANYL
     Route: 062
     Dates: start: 20140527, end: 20140604
  9. E-FEN BUCCAL [Suspect]
     Active Substance: FENTANYL CITRATE
     Dosage: DAILY DOSE: 100- 400 MICROGRAM
     Route: 002
     Dates: start: 20140601, end: 20140604

REACTIONS (1)
  - Oesophageal carcinoma [Fatal]

NARRATIVE: CASE EVENT DATE: 20160104
